FAERS Safety Report 8825243 (Version 5)
Quarter: 2014Q2

REPORT INFORMATION
  Report Type: Report from Study
  Country: JP (occurrence: JP)
  Receive Date: 20121004
  Receipt Date: 20140520
  Transmission Date: 20141212
  Serious: Yes (Hospitalization, Other)
  Sender: FDA-Public Use
  Company Number: JP-VERTEX PHARMACEUTICAL INC.-2012-022099

PATIENT
  Age: 60 Year
  Sex: Female

DRUGS (22)
  1. VX-950 (TELAPREVIR) [Suspect]
     Indication: CHRONIC HEPATITIS C
     Dosage: 1500 MG, QD
     Route: 048
     Dates: start: 20120803, end: 20120920
  2. VX-950 (TELAPREVIR) [Suspect]
     Dosage: 750 MG, QD
     Route: 048
     Dates: start: 20121002, end: 20121109
  3. RIBAVIRIN [Suspect]
     Indication: CHRONIC HEPATITIS C
     Dosage: 600 MG, QD
     Route: 048
     Dates: start: 20120803, end: 20120809
  4. RIBAVIRIN [Suspect]
     Dosage: 400 MG, QD
     Route: 048
     Dates: start: 20120810, end: 20120813
  5. RIBAVIRIN [Suspect]
     Dosage: 200 MG, QD
     Route: 048
     Dates: start: 20120814, end: 20120920
  6. RIBAVIRIN [Suspect]
     Dosage: 200 MG, QD
     Route: 048
     Dates: start: 20121002, end: 20121207
  7. PEGINTERFERON ALFA-2B [Suspect]
     Indication: CHRONIC HEPATITIS C
     Dosage: 1.5 ?G/KG, QW
     Route: 058
     Dates: start: 20120803, end: 20120920
  8. PEGINTERFERON ALFA-2B [Suspect]
     Dosage: 1.0 ?G/KG, QW
     Route: 058
     Dates: start: 20120921, end: 20120927
  9. PEGINTERFERON ALFA-2B [Suspect]
     Dosage: 1.5 ?G/KG, QW
     Route: 058
     Dates: start: 20121005, end: 20130125
  10. URSO [Concomitant]
     Dosage: 900 MG, QD
     Route: 048
  11. RENIVACE [Concomitant]
     Dosage: 5 MG, QD
     Route: 048
     Dates: end: 20120921
  12. RENIVACE [Concomitant]
     Dosage: 5 MG, QD
     Dates: start: 20121109
  13. ADALAT CR [Concomitant]
     Dosage: 40 MG, QD
     Route: 048
     Dates: end: 20120914
  14. ADALAT CR [Concomitant]
     Dosage: 40 MG, QD
     Route: 048
     Dates: start: 20121109
  15. PREMINENT [Concomitant]
     Dosage: 1 DF, QD
     Route: 048
     Dates: end: 20120921
  16. LASIX [Concomitant]
     Dosage: 20 MG, QD
     Route: 048
     Dates: end: 20120920
  17. NOVORAPID FLEXPEN [Concomitant]
     Dosage: 8 DF, QD
     Route: 058
  18. NOVORAPID 30 MIX [Concomitant]
     Dosage: 6 DF, QD
     Route: 058
  19. MENTAX [Concomitant]
     Dosage: UNK, PRN
     Route: 061
     Dates: start: 20120803, end: 20120914
  20. HIRUDOID [Concomitant]
     Dosage: UNK, PRN
     Route: 048
     Dates: start: 20120803, end: 20120914
  21. LENDORMIN [Concomitant]
     Dosage: 0.25 MG, PRN
     Route: 048
     Dates: start: 20120810
  22. LENDORMIN [Concomitant]
     Dosage: 0.25 MG, QD
     Route: 048

REACTIONS (2)
  - Decreased appetite [Recovered/Resolved]
  - Haemoglobin decreased [Recovered/Resolved]
